FAERS Safety Report 4596898-7 (Version None)
Quarter: 2005Q1

REPORT INFORMATION
  Report Type: 
  Country: None (occurrence: None)
  Receive Date: 20050228
  Receipt Date: 20050210
  Transmission Date: 20050727
  Serious: Yes (Hospitalization)
  Sender: FDA-Public Use
  Company Number: 05USA0063

PATIENT
  Age: 51 Year
  Sex: Female
  Weight: 90 kg

DRUGS (6)
  1. GLIADEL [Suspect]
     Indication: GLIOBLASTOMA MULTIFORME
     Dosage: 7.7 MG/WAFER MAXIMUM 8
     Dates: start: 20041115
  2. O6 BENZYL GUAININE (ANTINEOPLASTIC AGENTS) (INJECTION FOR INFUSION) [Suspect]
     Indication: GLIOBLASTOMA MULTIFORME
     Dosage: 120 MG/M*2 BOLUS FOLLOWED BY 30 MG/M*2 INFUSION 120 MG/M*2 BOLUS Q48H
  3. KEPPRA [Concomitant]
  4. LEXAPRO (ANTIDEPRESSANTS) [Concomitant]
  5. DECADRON [Concomitant]
  6. NEURONTIN [Concomitant]

REACTIONS (3)
  - LETHARGY [None]
  - PYREXIA [None]
  - SINUSITIS [None]
